FAERS Safety Report 15458420 (Version 1)
Quarter: 2018Q3

REPORT INFORMATION
  Report Type: Spontaneous
  Country: US (occurrence: US)
  Receive Date: 20180929
  Receipt Date: 20180929
  Transmission Date: 20181020
  Serious: Yes (Disabling, Other)
  Sender: FDA-Public Use
  Company Number: None

PATIENT
  Age: 49 Year
  Sex: Female
  Weight: 86.18 kg

DRUGS (1)
  1. MAVYRET [Suspect]
     Active Substance: GLECAPREVIR\PIBRENTASVIR
     Dates: start: 20180828

REACTIONS (6)
  - Cardiac disorder [None]
  - Hallucination [None]
  - Blood pressure increased [None]
  - Anxiety [None]
  - Fluid retention [None]
  - Loss of consciousness [None]

NARRATIVE: CASE EVENT DATE: 20180828
